FAERS Safety Report 18322294 (Version 1)
Quarter: 2020Q3

REPORT INFORMATION
  Report Type: Report from Study
  Country: CN (occurrence: CN)
  Receive Date: 20200928
  Receipt Date: 20200928
  Transmission Date: 20201103
  Serious: Yes (Other)
  Sender: FDA-Public Use
  Company Number: CN-JNJFOC-20200933305

PATIENT
  Sex: Male

DRUGS (2)
  1. ABIRATERONE ACETATE. [Suspect]
     Active Substance: ABIRATERONE ACETATE
     Indication: HORMONE-REFRACTORY PROSTATE CANCER
     Route: 048
  2. FLUTAMIDE. [Suspect]
     Active Substance: FLUTAMIDE
     Indication: HORMONE-REFRACTORY PROSTATE CANCER
     Route: 048

REACTIONS (7)
  - Nausea [Unknown]
  - Renal impairment [Unknown]
  - Thrombocytopenia [Unknown]
  - Hepatic function abnormal [Unknown]
  - Vomiting [Unknown]
  - Anaemia [Unknown]
  - Myelosuppression [Unknown]
